FAERS Safety Report 19145617 (Version 6)
Quarter: 2023Q1

REPORT INFORMATION
  Report Type: Spontaneous
  Country: CA (occurrence: CA)
  Receive Date: 20210416
  Receipt Date: 20230208
  Transmission Date: 20230417
  Serious: Yes (Other)
  Sender: FDA-Public Use
  Company Number: CA-CELLTRION INC.-2020CA030684

PATIENT

DRUGS (14)
  1. INFLECTRA [Suspect]
     Active Substance: INFLIXIMAB-DYYB
     Indication: Crohn^s disease
     Dosage: 500 MG, FREQUENCY: 8 WEEKS
     Route: 042
     Dates: start: 20200514
  2. INFLECTRA [Suspect]
     Active Substance: INFLIXIMAB-DYYB
     Dosage: 400 MG, Q8WEEKS
     Route: 042
     Dates: start: 20200514
  3. INFLECTRA [Suspect]
     Active Substance: INFLIXIMAB-DYYB
     Dosage: 500 MG, FREQUENCY: 8 WEEKS
     Route: 042
     Dates: start: 20200903
  4. INFLECTRA [Suspect]
     Active Substance: INFLIXIMAB-DYYB
     Dosage: 500 MG, FREQUENCY: 8 WEEKS
     Route: 042
     Dates: start: 20201029
  5. INFLECTRA [Suspect]
     Active Substance: INFLIXIMAB-DYYB
     Dosage: 500 MG, FREQUENCY: 8 WEEKS
     Route: 042
     Dates: start: 20210211
  6. INFLECTRA [Suspect]
     Active Substance: INFLIXIMAB-DYYB
     Dosage: 500 MG, FREQUENCY: 8 WEEKS
     Route: 042
     Dates: start: 20210211
  7. INFLECTRA [Suspect]
     Active Substance: INFLIXIMAB-DYYB
     Dosage: 500 MG, FREQUENCY: 8 WEEKS
     Route: 042
     Dates: start: 20210220
  8. INFLECTRA [Suspect]
     Active Substance: INFLIXIMAB-DYYB
     Dosage: 500 MG, FREQUENCY: 8 WEEKS
     Route: 042
     Dates: start: 20210407
  9. INFLECTRA [Suspect]
     Active Substance: INFLIXIMAB-DYYB
     Dosage: 500 MG, FREQUENCY: 8 WEEKS
     Route: 042
     Dates: start: 20210407
  10. INFLECTRA [Suspect]
     Active Substance: INFLIXIMAB-DYYB
     Dosage: 500 MG, FREQUENCY: 8 WEEKS
     Route: 042
     Dates: start: 20211118
  11. INFLECTRA [Suspect]
     Active Substance: INFLIXIMAB-DYYB
     Dosage: 400 MG,FREQUENCY: 8 WEEKS
     Route: 042
     Dates: start: 20220113
  12. INFLECTRA [Suspect]
     Active Substance: INFLIXIMAB-DYYB
     Dosage: 400 MG, Q8WEEKS
     Route: 042
     Dates: start: 20221027
  13. INFLECTRA [Suspect]
     Active Substance: INFLIXIMAB-DYYB
     Dosage: 400 MG, Q8WEEKS
     Route: 042
     Dates: start: 20221222
  14. INFLECTRA [Suspect]
     Active Substance: INFLIXIMAB-DYYB
     Dosage: 5 MG/KG, EVERY 8 WEEKS
     Route: 042

REACTIONS (5)
  - Joint dislocation [Unknown]
  - Skin infection [Recovered/Resolved]
  - Intentional product use issue [Unknown]
  - Off label use [Unknown]
  - Off label use [Unknown]

NARRATIVE: CASE EVENT DATE: 20200514
